APPROVED DRUG PRODUCT: PREVACID
Active Ingredient: LANSOPRAZOLE
Strength: 30MG/PACKET
Dosage Form/Route: FOR SUSPENSION, DELAYED RELEASE;ORAL
Application: N021281 | Product #002
Applicant: TAKEDA PHARMACEUTICALS NORTH AMERICA INC
Approved: May 3, 2001 | RLD: No | RS: No | Type: DISCN